FAERS Safety Report 16819224 (Version 1)
Quarter: 2019Q3

REPORT INFORMATION
  Report Type: Spontaneous
  Country: US (occurrence: US)
  Receive Date: 20190917
  Receipt Date: 20190917
  Transmission Date: 20191005
  Serious: Yes (Other)
  Sender: FDA-Public Use
  Company Number: US-SUNOVION-2019SUN003811

PATIENT
  Sex: Female

DRUGS (1)
  1. LATUDA [Suspect]
     Active Substance: LURASIDONE HYDROCHLORIDE
     Route: 048

REACTIONS (7)
  - Hip fracture [Unknown]
  - Limb discomfort [Unknown]
  - Abnormal behaviour [Unknown]
  - Muscular weakness [Unknown]
  - Tremor [Unknown]
  - Fall [Unknown]
  - Upper limb fracture [Unknown]
